FAERS Safety Report 6026342-4 (Version None)
Quarter: 2008Q4

REPORT INFORMATION
  Report Type: 
  Country: None (occurrence: None)
  Receive Date: 20081222
  Receipt Date: 20081014
  Transmission Date: 20090506
  Serious: No
  Sender: FDA-Public Use
  Company Number: US-WYE-H06384908

PATIENT
  Age: 56 Year
  Sex: Female
  Weight: 59.93 kg

DRUGS (9)
  1. PRISTIQ [Suspect]
     Indication: DEPRESSION
     Dosage: 50 MG 1X PER 1 DAY, ORAL ; TAPERED TO 50 MG EVERY OTHER DAY, ORAL ; 50 MG 1X PER 1 DAY, ORAL
     Route: 048
     Dates: start: 20080701
  2. AMBIEN [Concomitant]
  3. ESTROGENS SOL/INJ [Concomitant]
  4. NEXIUM [Concomitant]
  5. PROVERA [Concomitant]
  6. GLUCOSAMINE (GLUCOSAMINE) [Concomitant]
  7. XANAX [Concomitant]
  8. DESYREL [Concomitant]
  9. TIZANIDINE HCL [Concomitant]

REACTIONS (3)
  - DRUG WITHDRAWAL SYNDROME [None]
  - MALAISE [None]
  - PSYCHOMOTOR HYPERACTIVITY [None]
